FAERS Safety Report 5599128-2 (Version None)
Quarter: 2008Q1

REPORT INFORMATION
  Report Type: 
  Country: None (occurrence: None)
  Receive Date: 20080122
  Receipt Date: 20080116
  Transmission Date: 20080703
  Serious: Yes (Life-Threatening, Hospitalization)
  Sender: FDA-Public Use
  Company Number: GB-BOEHRINGER INGELHEIM PHARMACEUTICALS, INC.-2007-DE-06616GD

PATIENT
  Age: 66 Year
  Sex: Male

DRUGS (3)
  1. TIOTROPIUM-BROMIDE [Suspect]
     Indication: CHRONIC OBSTRUCTIVE PULMONARY DISEASE
     Route: 055
     Dates: start: 20030924, end: 20040213
  2. TIOTROPIUM-BROMIDE [Suspect]
     Route: 055
     Dates: start: 20040214, end: 20040322
  3. PLAVIX [Suspect]
     Dates: end: 20040322

REACTIONS (5)
  - ANGINA PECTORIS [None]
  - DERMATITIS ALLERGIC [None]
  - ERYTHEMA [None]
  - MYOCARDIAL INFARCTION [None]
  - PRURITUS [None]
